FAERS Safety Report 6609289-1 (Version None)
Quarter: 2010Q1

REPORT INFORMATION
  Report Type: 
  Country: None (occurrence: None)
  Receive Date: 20100224
  Receipt Date: 20100211
  Transmission Date: 20100710
  Serious: Yes (Death, Hospitalization)
  Sender: FDA-Public Use
  Company Number: CLOF-1000704

PATIENT
  Age: 17 Year
  Sex: Male
  Weight: 73 kg

DRUGS (17)
  1. CLOFARABINE             (CLOFARABINE) SOLUTION INFUSION [Suspect]
     Indication: ACUTE LYMPHOCYTIC LEUKAEMIA
     Dosage: 75 MG, QD, INTRAVENOUS
     Route: 042
     Dates: start: 20090915, end: 20090919
  2. ETOPOSIDE [Suspect]
     Indication: ACUTE LYMPHOCYTIC LEUKAEMIA
     Dosage: 188 MG,QD,INTRAVEOUS
     Route: 042
     Dates: start: 20090915, end: 20090919
  3. CYCLOPHOSPHAMIDE [Suspect]
     Dosage: 830MG QD
     Dates: start: 20090915, end: 20090919
  4. ACLOVIR [Concomitant]
  5. ALLOPURINOL [Concomitant]
  6. DAPSONE [Concomitant]
  7. FLUCONAZOLE [Concomitant]
  8. GABAPENTIN [Concomitant]
  9. LANSOPRAZOLE [Concomitant]
  10. METHADONE HYDROCHLORIDE [Concomitant]
  11. MORPHINE [Concomitant]
  12. ONDANSETRON [Concomitant]
  13. PROMETHAZINE [Concomitant]
  14. POLYETHYLENE GLYCOL [Concomitant]
  15. POLYETHYLENE GLYCOL [Concomitant]
  16. DOCUSATE SODIUM [Concomitant]
  17. LOVASTATIN [Concomitant]

REACTIONS (30)
  - APNOEA [None]
  - BACTERIAL INFECTION [None]
  - BLOOD CREATINE INCREASED [None]
  - BLOOD PRESSURE DECREASED [None]
  - BRAIN ABSCESS [None]
  - BRAIN OEDEMA [None]
  - CAPILLARY LEAK SYNDROME [None]
  - CARDIAC DEATH [None]
  - CELLULITIS [None]
  - CELLULITIS ORBITAL [None]
  - CEREBRAL FUNGAL INFECTION [None]
  - DECREASED APPETITE [None]
  - DIABETES INSIPIDUS [None]
  - GLIOSIS [None]
  - HAEMATOCRIT DECREASED [None]
  - HAEMORRHAGE INTRACRANIAL [None]
  - HEADACHE [None]
  - HYPERTENSION [None]
  - HYPOTENSION [None]
  - LOSS OF CONSCIOUSNESS [None]
  - LYMPHOPENIA [None]
  - MALAISE [None]
  - NEUTROPENIC INFECTION [None]
  - OPPORTUNISTIC INFECTION [None]
  - PAIN IN JAW [None]
  - SINUSITIS [None]
  - STAPHYLOCOCCAL BACTERAEMIA [None]
  - SWELLING FACE [None]
  - URINE OUTPUT INCREASED [None]
  - VITH NERVE PARALYSIS [None]
